FAERS Safety Report 21134346 (Version 9)
Quarter: 2022Q4

REPORT INFORMATION
  Report Type: Report from Study
  Country: PL (occurrence: PL)
  Receive Date: 20220726
  Receipt Date: 20221109
  Transmission Date: 20230113
  Serious: Yes (Hospitalization, Disabling, Other)
  Sender: FDA-Public Use
  Company Number: PL-BRISTOL-MYERS SQUIBB COMPANY-2022-074356

PATIENT
  Age: 56 Year
  Sex: Female

DRUGS (11)
  1. OZANIMOD [Suspect]
     Active Substance: OZANIMOD
     Indication: Relapsing multiple sclerosis
     Dosage: 1 DF = 1 CAPSULE?ON 11-JUL-2022, PATIENT RECEIVED MOST RECENT DOSE OF OZANIMOD PRIOR TO EVENT ONSET.
     Route: 048
     Dates: start: 20160413, end: 20220820
  2. ALLOPURINOL [Concomitant]
     Active Substance: ALLOPURINOL
     Indication: Gout
     Route: 048
     Dates: start: 20200430, end: 20220717
  3. DEXAC [Concomitant]
     Indication: Back pain
     Route: 048
     Dates: start: 20200806
  4. KETOPROFENUM [Concomitant]
     Indication: Gout
     Dosage: AS NEEDED
     Route: 048
     Dates: start: 20160708
  5. KETOPROFENUM [Concomitant]
     Indication: Sciatica
     Dosage: AS NEEDED
     Route: 048
     Dates: start: 20170501
  6. LEVOTHYROXINE [Concomitant]
     Active Substance: LEVOTHYROXINE
     Indication: Autoimmune thyroiditis
     Route: 048
     Dates: start: 20200915
  7. LEVOTHYROXINE [Concomitant]
     Active Substance: LEVOTHYROXINE
     Route: 048
  8. LEVOTHYROXINE [Concomitant]
     Active Substance: LEVOTHYROXINE
     Dosage: ONGOING.
     Route: 048
  9. LIPIFORMA PLUS [Concomitant]
     Indication: Hyperlipidaemia
     Dosage: 1 DOSAGE FORM= 1 TABLET.
     Route: 048
     Dates: end: 20220711
  10. PROLIVER [Concomitant]
     Indication: Prophylaxis
     Dosage: 1 DF=  1 TABLET
     Route: 048
     Dates: start: 20200805, end: 20220711
  11. TOLPERISONE [Concomitant]
     Active Substance: TOLPERISONE
     Indication: Sciatica
     Route: 048
     Dates: start: 20170501

REACTIONS (1)
  - Encephalitis brain stem [Recovered/Resolved with Sequelae]

NARRATIVE: CASE EVENT DATE: 20220712
